FAERS Safety Report 15544025 (Version 1)
Quarter: 2018Q4

REPORT INFORMATION
  Report Type: Spontaneous
  Country: US (occurrence: US)
  Receive Date: 20181023
  Receipt Date: 20181023
  Transmission Date: 20190205
  Serious: No
  Sender: FDA-Public Use
  Company Number: US-JNJFOC-20180931581

PATIENT
  Sex: Female
  Weight: 59.42 kg

DRUGS (2)
  1. WOMENS ROGAINE UNSCENTED [Suspect]
     Active Substance: MINOXIDIL
     Route: 061
  2. WOMENS ROGAINE UNSCENTED [Suspect]
     Active Substance: MINOXIDIL
     Indication: ALOPECIA
     Dosage: USING 3/4 CAP OF THE FOAM
     Route: 061

REACTIONS (3)
  - Hair growth abnormal [Unknown]
  - Off label use [Unknown]
  - Overdose [Unknown]
